FAERS Safety Report 6674959-6 (Version None)
Quarter: 2010Q2

REPORT INFORMATION
  Report Type: 
  Country: None (occurrence: None)
  Receive Date: 20100409
  Receipt Date: 20100407
  Transmission Date: 20101027
  Serious: Yes (Death, Hospitalization)
  Sender: FDA-Public Use
  Company Number: US-SANOFI-AVENTIS-2010SA020147

PATIENT
  Age: 61 Year
  Sex: Male

DRUGS (5)
  1. OXALIPLATIN [Suspect]
     Indication: RECTAL CANCER
     Dosage: OVER TWO HOURS ON DAYS 1, 8, 15, 22 AND 29
     Route: 042
     Dates: start: 20100120, end: 20100120
  2. OXALIPLATIN [Suspect]
     Dosage: OVER TWO HOURS ON DAYS 1, 8, 15, 22 AND 29
     Route: 042
     Dates: start: 20100203, end: 20100203
  3. BEVACIZUMAB [Suspect]
     Indication: RECTAL CANCER
     Dosage: OVER 30-90 MINUTES ON DAYS 1, 15, 29
     Route: 042
     Dates: start: 20100120, end: 20100120
  4. BEVACIZUMAB [Suspect]
     Dosage: OVER 30-90 MINUTES ON DAYS 1, 15, 29
     Route: 042
     Dates: start: 20100203, end: 20100203
  5. CAPECITABINE [Suspect]
     Indication: RECTAL CANCER
     Dosage: EVERY TWELVE HOURS FIVE DAYS PER WEEK
     Route: 048
     Dates: start: 20100120, end: 20100217

REACTIONS (5)
  - DISSEMINATED INTRAVASCULAR COAGULATION [None]
  - HYPONATRAEMIA [None]
  - HYPOTHERMIA [None]
  - ILEUS [None]
  - SMALL INTESTINAL OBSTRUCTION [None]
